FAERS Safety Report 18910837 (Version 1)
Quarter: 2021Q1

REPORT INFORMATION
  Report Type: Spontaneous
  Country: CO (occurrence: CO)
  Receive Date: 20210218
  Receipt Date: 20210218
  Transmission Date: 20210420
  Serious: Yes (Other)
  Sender: FDA-Public Use
  Company Number: CO-PFIZER INC-2021167774

PATIENT
  Sex: Female

DRUGS (1)
  1. SUTENT [Suspect]
     Active Substance: SUNITINIB MALATE
     Dosage: 1 DF (REPORTED AS 50)

REACTIONS (4)
  - Decreased appetite [Unknown]
  - Discouragement [Unknown]
  - Blood pressure increased [Unknown]
  - Epistaxis [Unknown]
